FAERS Safety Report 22589528 (Version 1)
Quarter: 2023Q2

REPORT INFORMATION
  Report Type: Spontaneous
  Country: PL (occurrence: PL)
  Receive Date: 20230612
  Receipt Date: 20230612
  Transmission Date: 20230722
  Serious: Yes (Other)
  Sender: FDA-Public Use
  Company Number: None

PATIENT
  Age: 11 Year
  Sex: Male
  Weight: 28 kg

DRUGS (1)
  1. GENOTROPIN [Suspect]
     Active Substance: SOMATROPIN
     Dosage: FREQ:24 H
     Route: 058
     Dates: start: 20190805, end: 20190921

REACTIONS (5)
  - Injection site erythema [Recovered/Resolved]
  - Injection site pain [Recovered/Resolved]
  - Malabsorption from injection site [Recovered/Resolved]
  - Injection site discolouration [Recovered/Resolved]
  - Injection site hypertrophy [Recovered/Resolved]

NARRATIVE: CASE EVENT DATE: 20190801
